FAERS Safety Report 25260319 (Version 3)
Quarter: 2025Q3

REPORT INFORMATION
  Report Type: Spontaneous
  Country: GB (occurrence: GB)
  Receive Date: 20250501
  Receipt Date: 20250702
  Transmission Date: 20251021
  Serious: Yes (Other)
  Sender: CHATTEM
  Company Number: GB-OPELLA-2025OHG013007

PATIENT
  Age: 78 Year
  Sex: Female

DRUGS (1)
  1. FEXOFENADINE HYDROCHLORIDE [Suspect]
     Active Substance: FEXOFENADINE HYDROCHLORIDE
     Indication: Systemic mastocytosis
     Route: 065
     Dates: start: 20240109

REACTIONS (9)
  - Swollen tongue [Unknown]
  - Oral pain [Unknown]
  - Oropharyngeal pain [Unknown]
  - Lip swelling [Unknown]
  - Oral pruritus [Unknown]
  - Allergic reaction to excipient [Unknown]
  - Fatigue [Unknown]
  - Off label use [Unknown]
  - Off label use [Unknown]
